FAERS Safety Report 7627040 (Version 3)
Quarter: 2012Q4

REPORT INFORMATION
  Report Type: 
  Country: US (occurrence: US)
  Receive Date: 20101013
  Receipt Date: 20120924
  Transmission Date: 20130627
  Serious: Yes (Other)
  Sender: FDA-Public Use
  Company Number: US-ASTRAZENECA-2010SE34369

PATIENT
  Age: 61 Year
  Sex: Male

DRUGS (1)
  1. SYMBICORT PMDI [Suspect]
     Dosage: 640 MCG, TWO TIMES A DAY
     Route: 055
     Dates: start: 201006

REACTIONS (7)
  - Brain neoplasm [Unknown]
  - Lung neoplasm [Unknown]
  - Neoplasm malignant [Unknown]
  - Deafness [Unknown]
  - Dyspnoea [Unknown]
  - Oropharyngeal pain [Recovered/Resolved]
  - Drug dose omission [Unknown]
